FAERS Safety Report 9290047 (Version 1)
Quarter: 2013Q2

REPORT INFORMATION
  Report Type: Spontaneous
  Country: IT (occurrence: None)
  Receive Date: 20130510
  Receipt Date: 20130510
  Transmission Date: 20140414
  Serious: Yes (Other)
  Sender: FDA-Public Use
  Company Number: 2013P1005374

PATIENT
  Age: 13 Year
  Sex: Male

DRUGS (5)
  1. RISPERIDONE [Suspect]
     Indication: PSYCHOTIC DISORDER
  2. RISPERIDONE [Suspect]
     Indication: OBSESSIVE-COMPULSIVE DISORDER
  3. RISPERIDONE [Suspect]
     Indication: MILD MENTAL RETARDATION
  4. SERTRALINE [Concomitant]
  5. VALPROIC ACID [Concomitant]

REACTIONS (2)
  - Weight increased [None]
  - Dyslipidaemia [None]
